FAERS Safety Report 13190399 (Version 2)
Quarter: 2017Q1

REPORT INFORMATION
  Report Type: Spontaneous
  Country: CH (occurrence: CH)
  Receive Date: 20170206
  Receipt Date: 20170307
  Transmission Date: 20170428
  Serious: Yes (Hospitalization, Other)
  Sender: FDA-Public Use
  Company Number: CH-009507513-1702CHE001087

PATIENT
  Age: 85 Year
  Sex: Male

DRUGS (10)
  1. KEYTRUDA [Suspect]
     Active Substance: PEMBROLIZUMAB
     Indication: MALIGNANT MELANOMA
     Dosage: 200 MG, UNK
     Dates: start: 20160711, end: 20160711
  2. PANTOPRAZOLE [Concomitant]
     Active Substance: PANTOPRAZOLE SODIUM
  3. KEYTRUDA [Suspect]
     Active Substance: PEMBROLIZUMAB
     Dosage: 150 MG, UNK
     Dates: start: 20161110, end: 20161110
  4. SINTROM [Concomitant]
     Active Substance: ACENOCOUMAROL
  5. PERINDOPRIL [Concomitant]
     Active Substance: PERINDOPRIL
  6. ROSUVASTATIN. [Concomitant]
     Active Substance: ROSUVASTATIN
  7. KEYTRUDA [Suspect]
     Active Substance: PEMBROLIZUMAB
     Dosage: 200 MG, UNK
     Dates: start: 20160825, end: 20160825
  8. KEYTRUDA [Suspect]
     Active Substance: PEMBROLIZUMAB
     Dosage: 150 MG, UNK
     Dates: start: 20160915, end: 20160915
  9. KEYTRUDA [Suspect]
     Active Substance: PEMBROLIZUMAB
     Dosage: 150 MG, UNK
     Dates: start: 20161010, end: 20161010
  10. AMLODIPINE [Concomitant]
     Active Substance: AMLODIPINE BESYLATE

REACTIONS (5)
  - Organising pneumonia [Recovered/Resolved]
  - Acute kidney injury [Recovered/Resolved]
  - Organising pneumonia [Recovered/Resolved]
  - Interstitial lung disease [Recovering/Resolving]
  - Nephritis [Recovering/Resolving]

NARRATIVE: CASE EVENT DATE: 2016
